FAERS Safety Report 8264714-8 (Version None)
Quarter: 2012Q2

REPORT INFORMATION
  Report Type: 
  Country: None (occurrence: None)
  Receive Date: 20120406
  Receipt Date: 20120319
  Transmission Date: 20120825
  Serious: Yes (Other)
  Sender: FDA-Public Use
  Company Number: US-AMGEN-USASP2012001228

PATIENT
  Age: 91 Year
  Sex: Male
  Weight: 78.912 kg

DRUGS (18)
  1. ATROVENT HFA [Concomitant]
     Dosage: UNK UNK, BID
  2. ISOSORBIDE DINITRATE [Concomitant]
  3. PROCRIT [Suspect]
     Indication: ANAEMIA
     Dosage: 20000 IU, QWK
     Route: 058
     Dates: start: 20110101
  4. SEREVENT [Concomitant]
     Dosage: 50 MUG, QD
  5. LEVOTHYROXINE SODIUM [Concomitant]
     Dosage: 125 MUG, QD
  6. CALCITRIOL [Concomitant]
     Dosage: 0.25 MUG, QD
  7. JANUVIA [Concomitant]
     Dosage: 100 MG, QD
  8. ACTOS [Concomitant]
     Indication: DIABETES MELLITUS
     Dosage: 45 MG, QD
     Route: 048
  9. HYDRALAZINE HCL [Concomitant]
     Dosage: 10 MG, QD
  10. ASPIRIN [Concomitant]
     Dosage: 81 MG, QD
  11. ENALAPRIL MALEATE [Concomitant]
     Dosage: 10 MG, QD
  12. CARVEDILOL [Concomitant]
     Dosage: 12.5 MG, BID
  13. SIMVASTATIN [Concomitant]
     Dosage: 80 MG, QD
  14. VITAMIN D [Concomitant]
  15. CENTRUM                            /00554501/ [Concomitant]
     Dosage: 2000 IU, QD
  16. FOLIC ACID [Concomitant]
     Dosage: 800 MUG, QD
  17. FUROSEMIDE [Concomitant]
     Dosage: 40 MG, QD
  18. TEMAZEPAM [Concomitant]
     Dosage: 15 MG, QD

REACTIONS (1)
  - HAEMOGLOBIN DECREASED [None]
